FAERS Safety Report 8762392 (Version 1)
Quarter: 2012Q4

REPORT INFORMATION
  Report Type: 
  Country: US (occurrence: US)
  Receive Date: 20120830
  Receipt Date: 20120830
  Transmission Date: 20130627
  Serious: Yes (Other)
  Sender: FDA-Public Use
  Company Number: US-PFIZER INC-2012212498

PATIENT
  Age: 70 Year
  Sex: Female
  Weight: 72.56 kg

DRUGS (4)
  1. LYRICA [Suspect]
     Indication: FIBROMYALGIA
     Dosage: 75 mg in the morning and 150mg at night, 2x/day
     Route: 048
  2. LYRICA [Suspect]
     Dosage: UNK
     Route: 048
  3. TOPROL [Concomitant]
     Indication: HYPERTENSION
     Dosage: 200 mg, daily
     Route: 048
  4. CRESTOR [Concomitant]
     Indication: BLOOD CHOLESTEROL INCREASED
     Dosage: 10 mg, daily
     Route: 048

REACTIONS (1)
  - Fibromyalgia [Unknown]
